FAERS Safety Report 6519898-6 (Version None)
Quarter: 2009Q4

REPORT INFORMATION
  Report Type: 
  Country: None (occurrence: None)
  Receive Date: 20091229
  Receipt Date: 20091217
  Transmission Date: 20100525
  Serious: Yes (Other)
  Sender: FDA-Public Use
  Company Number: US-BIOGENIDEC-2009BI020616

PATIENT
  Age: 62 Year
  Sex: Female

DRUGS (2)
  1. TYSABRI [Suspect]
     Indication: MULTIPLE SCLEROSIS
     Route: 042
     Dates: start: 20081017, end: 20090515
  2. TYSABRI [Suspect]
     Route: 042
     Dates: start: 20090922

REACTIONS (2)
  - LEUKOCYTOSIS [None]
  - POOR VENOUS ACCESS [None]
